FAERS Safety Report 10577228 (Version 1)
Quarter: 2014Q4

REPORT INFORMATION
  Report Type: Spontaneous
  Country: HU (occurrence: HU)
  Receive Date: 20141111
  Receipt Date: 20141111
  Transmission Date: 20150529
  Serious: Yes (Hospitalization, Other)
  Sender: FDA-Public Use
  Company Number: HU-WATSON-2014-23852

PATIENT
  Age: 77 Year
  Sex: Female

DRUGS (1)
  1. PROPAFENONE (WATSON LABORATORIES) [Suspect]
     Active Substance: PROPAFENONE
     Indication: SINUS NODE DYSFUNCTION
     Dosage: 300 MG, BID
     Route: 048

REACTIONS (2)
  - Device malfunction [Recovered/Resolved]
  - Syncope [Recovered/Resolved]
